FAERS Safety Report 8803411 (Version 2)
Quarter: 2012Q4

REPORT INFORMATION
  Report Type: 
  Country: US (occurrence: US)
  Receive Date: 20120924
  Receipt Date: 20121126
  Transmission Date: 20130627
  Serious: Yes (Other)
  Sender: FDA-Public Use
  Company Number: US-ASTRAZENECA-2012SE72389

PATIENT
  Age: 82 Year
  Sex: Female
  Weight: 86.2 kg

DRUGS (7)
  1. NEXIUM [Suspect]
     Indication: EROSIVE OESOPHAGITIS
     Route: 048
  2. NEXIUM [Suspect]
     Indication: HIATUS HERNIA
     Route: 048
  3. NEXIUM [Suspect]
     Indication: GASTRIC HAEMORRHAGE
     Route: 048
  4. NEXIUM [Suspect]
     Indication: EROSIVE OESOPHAGITIS
     Route: 048
  5. NEXIUM [Suspect]
     Indication: HIATUS HERNIA
     Route: 048
  6. NEXIUM [Suspect]
     Indication: GASTRIC HAEMORRHAGE
     Route: 048
  7. UNKNOWN MEDICATION [Suspect]
     Route: 065

REACTIONS (5)
  - Anaemia [Unknown]
  - Gastric haemorrhage [Unknown]
  - Polyp [Unknown]
  - Off label use [Unknown]
  - Drug dose omission [Unknown]
